FAERS Safety Report 11853535 (Version 1)
Quarter: 2015Q4

REPORT INFORMATION
  Report Type: Spontaneous
  Country: US (occurrence: US)
  Receive Date: 20151219
  Receipt Date: 20151219
  Transmission Date: 20160305
  Serious: No
  Sender: FDA-Public Use
  Company Number: US-BAUSCH-BL-2015-017001

PATIENT
  Sex: Male

DRUGS (2)
  1. XENAZINE [Suspect]
     Active Substance: TETRABENAZINE
     Indication: HUNTINGTON^S DISEASE
     Route: 048
     Dates: start: 201503
  2. XENAZINE [Suspect]
     Active Substance: TETRABENAZINE
     Dosage: ? TABLET IN THE MORNING, ? TABLET AT NOON AND ONE TABLET IN THE EVENING.
     Route: 048
     Dates: start: 2015

REACTIONS (1)
  - Treatment noncompliance [Unknown]

NARRATIVE: CASE EVENT DATE: 2015
